FAERS Safety Report 17571709 (Version 4)
Quarter: 2020Q2

REPORT INFORMATION
  Report Type: Spontaneous
  Country: US (occurrence: US)
  Receive Date: 20200323
  Receipt Date: 20200519
  Transmission Date: 20200713
  Serious: No
  Sender: FDA-Public Use
  Company Number: US-VERTEX PHARMACEUTICALS-2020-005732

PATIENT
  Age: 2 Year
  Sex: Male
  Weight: 14 kg

DRUGS (5)
  1. ZENPEP [Concomitant]
     Active Substance: PANCRELIPASE AMYLASE\PANCRELIPASE LIPASE\PANCRELIPASE PROTEASE
     Dosage: UNK
  2. ALBUTEROL SULFATE. [Concomitant]
     Active Substance: ALBUTEROL SULFATE
     Dosage: UNK
  3. HYPERSAL [Concomitant]
     Active Substance: SODIUM CHLORIDE
     Dosage: 7%
  4. PULMOZYME [Concomitant]
     Active Substance: DORNASE ALFA
     Dosage: 1MG/ML
  5. ORKAMBI [Suspect]
     Active Substance: IVACAFTOR\LUMACAFTOR
     Indication: CYSTIC FIBROSIS
     Dosage: 1 PACKET, BID
     Route: 048
     Dates: start: 20190613

REACTIONS (4)
  - Viral rash [Recovered/Resolved]
  - Rash erythematous [Recovered/Resolved]
  - Rash maculo-papular [Recovered/Resolved]
  - Cough [Recovered/Resolved]

NARRATIVE: CASE EVENT DATE: 20200302
